FAERS Safety Report 5332272-3 (Version None)
Quarter: 2007Q2

REPORT INFORMATION
  Report Type: 
  Country: None (occurrence: None)
  Receive Date: 20070521
  Receipt Date: 20070521
  Transmission Date: 20071010
  Serious: No
  Sender: FDA-Public Use
  Company Number: None

PATIENT
  Age: 39 Year
  Sex: Female
  Weight: 59.8748 kg

DRUGS (1)
  1. GADOLINIUM [Suspect]
     Indication: NUCLEAR MAGNETIC RESONANCE IMAGING
     Dates: start: 20070318, end: 20070318

REACTIONS (5)
  - DYSGEUSIA [None]
  - FEELING HOT [None]
  - HEART RATE INCREASED [None]
  - MEDICATION ERROR [None]
  - PHARYNGEAL OEDEMA [None]
